FAERS Safety Report 12683199 (Version 1)
Quarter: 2016Q3

REPORT INFORMATION
  Report Type: Spontaneous
  Country: US (occurrence: None)
  Receive Date: 20160824
  Receipt Date: 20160824
  Transmission Date: 20161109
  Serious: No
  Sender: FDA-Public Use
  Company Number: None

PATIENT

DRUGS (2)
  1. MUCINEX [Suspect]
     Active Substance: GUAIFENESIN
  2. MUCINEX [Suspect]
     Active Substance: GUAIFENESIN

REACTIONS (2)
  - Transcription medication error [None]
  - Product dosage form issue [None]
